FAERS Safety Report 12266359 (Version 1)
Quarter: 2016Q2

REPORT INFORMATION
  Report Type: Spontaneous
  Country: US (occurrence: None)
  Receive Date: 20160413
  Receipt Date: 20160413
  Transmission Date: 20160815
  Serious: Yes (Disabling, Other)
  Sender: FDA-Public Use
  Company Number: None

PATIENT
  Age: 52 Year
  Sex: Male
  Weight: 68.04 kg

DRUGS (2)
  1. CIPROFLOXACIN. [Suspect]
     Active Substance: CIPROFLOXACIN
     Indication: PROSTATITIS
     Route: 048
     Dates: start: 20150820, end: 20150821
  2. CIPROFLOXACIN. [Suspect]
     Active Substance: CIPROFLOXACIN
     Indication: URINE ANALYSIS
     Route: 048
     Dates: start: 20150820, end: 20150821

REACTIONS (15)
  - Tinnitus [None]
  - Pain in extremity [None]
  - Nightmare [None]
  - Vitreous floaters [None]
  - Tremor [None]
  - Memory impairment [None]
  - Toxicity to various agents [None]
  - Arthralgia [None]
  - Disturbance in attention [None]
  - Weight decreased [None]
  - Impaired quality of life [None]
  - Anxiety [None]
  - Impaired work ability [None]
  - Asthenia [None]
  - Photosensitivity reaction [None]

NARRATIVE: CASE EVENT DATE: 20150823
